FAERS Safety Report 10115402 (Version 2)
Quarter: 2015Q1

REPORT INFORMATION
  Report Type: Other
  Country: US (occurrence: US)
  Receive Date: 20140426
  Receipt Date: 20150128
  Transmission Date: 20150720
  Serious: Yes (Hospitalization, Other)
  Sender: FDA-Public Use
  Company Number: US-GSKPPD-2014GSK016575

PATIENT
  Age: 57 Year
  Sex: Male

DRUGS (6)
  1. TOPROL XL [Concomitant]
     Active Substance: METOPROLOL SUCCINATE
     Route: 048
  2. NITROGLYCERIN. [Concomitant]
     Active Substance: NITROGLYCERIN
  3. COZAAR [Concomitant]
     Active Substance: LOSARTAN POTASSIUM
     Route: 048
  4. LOVENOX [Concomitant]
     Active Substance: ENOXAPARIN SODIUM
     Dosage: 1MG PER KG
     Route: 058
  5. ASPIRIN. [Concomitant]
     Active Substance: ASPIRIN
     Route: 048
  6. AVANDIA [Suspect]
     Active Substance: ROSIGLITAZONE MALEATE
     Indication: DIABETES MELLITUS
     Dosage: DATES OF AVANDIA USE COULD NOT BE CONFIRMED IN RECORDS REVIEWED.
     Route: 048

REACTIONS (3)
  - Angina unstable [Unknown]
  - Coronary artery disease [Unknown]
  - Myocardial infarction [Unknown]

NARRATIVE: CASE EVENT DATE: 20030730
